FAERS Safety Report 17449993 (Version 1)
Quarter: 2020Q1

REPORT INFORMATION
  Report Type: Spontaneous
  Country: US (occurrence: US)
  Receive Date: 20200224
  Receipt Date: 20200224
  Transmission Date: 20200409
  Serious: No
  Sender: FDA-Public Use
  Company Number: US-009507513-2001USA010767

PATIENT
  Sex: Male

DRUGS (2)
  1. KEYTRUDA [Suspect]
     Active Substance: PEMBROLIZUMAB
     Indication: LUNG NEOPLASM MALIGNANT
     Dosage: UNK, EVERY 3 WEEKS
     Route: 042
     Dates: start: 201910
  2. INLYTA [Suspect]
     Active Substance: AXITINIB
     Indication: LUNG NEOPLASM MALIGNANT
     Dosage: UNK, TWICE A DAY
     Dates: start: 201910

REACTIONS (2)
  - Skin ulcer [Not Recovered/Not Resolved]
  - Pain in extremity [Not Recovered/Not Resolved]
